FAERS Safety Report 6192089-7 (Version None)
Quarter: 2009Q2

REPORT INFORMATION
  Report Type: 
  Country: None (occurrence: None)
  Receive Date: 20090515
  Receipt Date: 20090506
  Transmission Date: 20091009
  Serious: Yes (Other)
  Sender: FDA-Public Use
  Company Number: US-PFIZER INC-2005172471

PATIENT
  Sex: Female
  Weight: 66 kg

DRUGS (6)
  1. PROVERA [Suspect]
     Indication: HORMONE REPLACEMENT THERAPY
     Route: 048
     Dates: start: 19940908, end: 19961027
  2. PROVERA [Suspect]
     Route: 048
     Dates: start: 19970310, end: 19970612
  3. PREMARIN [Suspect]
     Indication: HORMONE REPLACEMENT THERAPY
     Route: 065
     Dates: start: 19941012, end: 19961027
  4. PREMPRO [Suspect]
     Indication: HORMONE REPLACEMENT THERAPY
     Route: 065
     Dates: start: 19961028, end: 19970309
  5. PREMPRO [Suspect]
     Route: 065
     Dates: start: 19970614, end: 20000530
  6. CLIMARA [Suspect]
     Indication: HORMONE REPLACEMENT THERAPY
     Route: 065
     Dates: start: 19970310, end: 19970612

REACTIONS (1)
  - BREAST CANCER FEMALE [None]
